FAERS Safety Report 8548120-4 (Version None)
Quarter: 2012Q3

REPORT INFORMATION
  Report Type: 
  Country: None (occurrence: None)
  Receive Date: 20120730
  Receipt Date: 20120716
  Transmission Date: 20120928
  Serious: No
  Sender: FDA-Public Use
  Company Number: US-009507513-1207USA006202

PATIENT

DRUGS (3)
  1. PEPCID [Suspect]
     Indication: GASTRITIS
     Dosage: 40 MG, BID
     Route: 048
     Dates: start: 20120401
  2. VITAMINS (UNSPECIFIED) [Concomitant]
  3. CALCIUM (UNSPECIFIED) [Concomitant]
     Dosage: UNK

REACTIONS (2)
  - FLATULENCE [None]
  - ABDOMINAL DISTENSION [None]
